FAERS Safety Report 16013303 (Version 1)
Quarter: 2019Q1

REPORT INFORMATION
  Report Type: Spontaneous
  Country: US (occurrence: US)
  Receive Date: 20190227
  Receipt Date: 20190227
  Transmission Date: 20190418
  Serious: Yes (Hospitalization, Disabling)
  Sender: FDA-Public Use
  Company Number: None

PATIENT
  Age: 64 Year
  Sex: Female
  Weight: 96.75 kg

DRUGS (8)
  1. BIOTIN [Concomitant]
     Active Substance: BIOTIN
  2. CALCIUM [Concomitant]
     Active Substance: CALCIUM
  3. MULTIVITAMIN [Concomitant]
     Active Substance: VITAMINS
  4. VITAMIN B12 [Concomitant]
     Active Substance: CYANOCOBALAMIN
  5. DULOXEDINE [Concomitant]
  6. FISH OIL [Concomitant]
     Active Substance: FISH OIL
  7. LEVAQUIN [Suspect]
     Active Substance: LEVOFLOXACIN
     Indication: DIVERTICULITIS
     Dates: start: 20090801, end: 20090810
  8. VITAMIN D3 [Concomitant]
     Active Substance: CHOLECALCIFEROL

REACTIONS (9)
  - Tendon pain [None]
  - Pain in extremity [None]
  - Nerve injury [None]
  - Arthralgia [None]
  - Anxiety [None]
  - Tinnitus [None]
  - General physical health deterioration [None]
  - Deafness [None]
  - Depression [None]

NARRATIVE: CASE EVENT DATE: 20090809
